FAERS Safety Report 8021228-8 (Version None)
Quarter: 2012Q1

REPORT INFORMATION
  Report Type: 
  Country: None (occurrence: None)
  Receive Date: 20120104
  Receipt Date: 20111228
  Transmission Date: 20120608
  Serious: Yes (Other)
  Sender: FDA-Public Use
  Company Number: FR-JNJFOC-20111105855

PATIENT
  Sex: Male
  Weight: 81 kg

DRUGS (2)
  1. RISPERDAL CONSTA [Suspect]
     Indication: SCHIZOAFFECTIVE DISORDER
     Route: 030
     Dates: start: 20110101, end: 20111101
  2. VALIUM [Concomitant]
     Route: 065

REACTIONS (3)
  - PULMONARY EMBOLISM [None]
  - MICTURITION DISORDER [None]
  - TACHYCARDIA [None]
